FAERS Safety Report 8008990-5 (Version None)
Quarter: 2011Q4

REPORT INFORMATION
  Report Type: 
  Country: None (occurrence: None)
  Receive Date: 20111227
  Receipt Date: 20111221
  Transmission Date: 20120403
  Serious: No
  Sender: FDA-Public Use
  Company Number: US-PFIZER INC-2011311807

PATIENT
  Sex: Male
  Weight: 75 kg

DRUGS (3)
  1. LANTUS [Concomitant]
     Indication: DIABETES MELLITUS
     Dosage: UNK
  2. AMLODIPINE BESYLATE [Suspect]
     Indication: HYPERTENSION
     Dosage: 5 MG, DAILY
     Dates: start: 20110101
  3. AMLODIPINE BESYLATE [Suspect]
     Dosage: 10 MG, DAILY
     Dates: start: 20110101

REACTIONS (1)
  - MALAISE [None]
